FAERS Safety Report 7157236-9 (Version None)
Quarter: 2010Q4

REPORT INFORMATION
  Report Type: 
  Country: None (occurrence: None)
  Receive Date: 20101214
  Receipt Date: 20091210
  Transmission Date: 20110411
  Serious: No
  Sender: FDA-Public Use
  Company Number: US-ASTRAZENECA-2009SE31266

PATIENT
  Age: 66 Year
  Sex: Male
  Weight: 77.1 kg

DRUGS (6)
  1. CRESTOR [Suspect]
     Route: 048
     Dates: start: 20080101
  2. PLAVIX [Concomitant]
  3. METOPROLOL SUCCINATE [Concomitant]
  4. DIOVAN [Concomitant]
  5. ASPIRIN [Concomitant]
  6. FOLIC ACID [Concomitant]

REACTIONS (2)
  - BACK PAIN [None]
  - MYALGIA [None]
